FAERS Safety Report 9184556 (Version 1)
Quarter: 2012Q4

REPORT INFORMATION
  Report Type: Report from Study
  Country: BR (occurrence: BR)
  Receive Date: 20121101
  Receipt Date: 20121101
  Transmission Date: 20130627
  Serious: Yes (Death, Other)
  Sender: FDA-Public Use
  Company Number: BR-PFIZER INC-2012270857

PATIENT
  Age: 54 Year
  Sex: Male

DRUGS (1)
  1. LIPITOR [Suspect]
     Indication: CHOLESTEROL
     Dosage: 40 mg, once daily (one tablet of 40mg, once a day)
     Dates: start: 20101217

REACTIONS (2)
  - Myocardial ischaemia [Fatal]
  - Infarction [Unknown]
